FAERS Safety Report 15097375 (Version 3)
Quarter: 2018Q3

REPORT INFORMATION
  Report Type: Report from Study
  Country: US (occurrence: US)
  Receive Date: 20180702
  Receipt Date: 20180711
  Transmission Date: 20181010
  Serious: Yes (Hospitalization, Other)
  Sender: FDA-Public Use
  Company Number: US-GILEAD-2018-0346930

PATIENT
  Age: 70 Year
  Sex: Female

DRUGS (1)
  1. AMBRISENTAN [Suspect]
     Active Substance: AMBRISENTAN
     Indication: PRODUCT USED FOR UNKNOWN INDICATION
     Dosage: 5 MG, UNK
     Route: 065
     Dates: start: 20180501

REACTIONS (8)
  - Fall [Unknown]
  - Syncope [Unknown]
  - Apparent death [Unknown]
  - Arterial occlusive disease [Not Recovered/Not Resolved]
  - Urosepsis [Recovered/Resolved]
  - Ankle fracture [Recovered/Resolved]
  - Urinary tract infection [Recovered/Resolved]
  - Product use issue [Recovered/Resolved]

NARRATIVE: CASE EVENT DATE: 2018
